FAERS Safety Report 21229060 (Version 3)
Quarter: 2022Q3

REPORT INFORMATION
  Report Type: Report from Study
  Country: CA (occurrence: CA)
  Receive Date: 20220818
  Receipt Date: 20220824
  Transmission Date: 20221027
  Serious: Yes (Hospitalization)
  Sender: FDA-Public Use
  Company Number: CA-ABBVIE-22K-028-4505890-00

PATIENT
  Age: 83 Year
  Sex: Female

DRUGS (1)
  1. SKYRIZI [Suspect]
     Active Substance: RISANKIZUMAB-RZAA
     Indication: Psoriasis
     Route: 058
     Dates: start: 20220812

REACTIONS (4)
  - Blood pressure increased [Unknown]
  - Tachycardia [Unknown]
  - Emergency care [Unknown]
  - Stress [Unknown]

NARRATIVE: CASE EVENT DATE: 20220801
